FAERS Safety Report 15681229 (Version 3)
Quarter: 2019Q3

REPORT INFORMATION
  Report Type: Report from Study
  Country: GB (occurrence: GB)
  Receive Date: 20181203
  Receipt Date: 20190801
  Transmission Date: 20191004
  Serious: Yes (Other)
  Sender: FDA-Public Use
  Company Number: GB-PFIZER INC-2018495373

PATIENT

DRUGS (4)
  1. NELFINAVIR MESILATE [Suspect]
     Active Substance: NELFINAVIR MESYLATE
     Indication: PANCREATIC CARCINOMA
     Dosage: 1000 MG, 2X/DAY (DOSE WAS ESCALATED AS PER THE ROLLING-SIX DESIGN)
  2. NAB-PACLITAXEL [Concomitant]
     Active Substance: PACLITAXEL
     Indication: PANCREATIC CARCINOMA
     Dosage: 125 MG/M2, CYCLIC (3 CYCLES OF INDUCTION, 28-DAY CYCLE)
  3. GEMCITABINE. [Concomitant]
     Active Substance: GEMCITABINE
     Indication: PANCREATIC CARCINOMA
     Dosage: 1000 MG/M2, CYCLIC (3 CYCLES OF INDUCTION, ON DAYS 1, 8, AND 15)
  4. CAPECITABINE. [Concomitant]
     Active Substance: CAPECITABINE
     Indication: PANCREATIC CARCINOMA
     Dosage: 830 MG/M2, 2X/DAY (ON RADIOTHERAPY DAYS)

REACTIONS (1)
  - Acute coronary syndrome [Unknown]
